FAERS Safety Report 6616241-9 (Version None)
Quarter: 2010Q1

REPORT INFORMATION
  Report Type: 
  Country: None (occurrence: None)
  Receive Date: 20100305
  Receipt Date: 20100224
  Transmission Date: 20100710
  Serious: Yes (Hospitalization)
  Sender: FDA-Public Use
  Company Number: GXKR2010PT02277

PATIENT
  Age: 57 Year
  Sex: Female

DRUGS (2)
  1. BISOPROLOL (NGX) [Suspect]
     Indication: VENTRICULAR EXTRASYSTOLES
     Dosage: 5 MG/DAY
     Route: 065
  2. MEFLOQUINE (NGX) [Interacting]
     Indication: MALARIA PROPHYLAXIS
     Dosage: 250 MG, QW
     Route: 048

REACTIONS (5)
  - ATRIOVENTRICULAR BLOCK [None]
  - BRADYCARDIA [None]
  - DRUG INTERACTION [None]
  - FATIGUE [None]
  - PRESYNCOPE [None]
